FAERS Safety Report 8326348-6 (Version None)
Quarter: 2012Q2

REPORT INFORMATION
  Report Type: 
  Country: None (occurrence: None)
  Receive Date: 20120501
  Receipt Date: 20120418
  Transmission Date: 20120825
  Serious: Yes (Hospitalization)
  Sender: FDA-Public Use
  Company Number: JP-ACTELION-A-CH2012-64390

PATIENT
  Age: 49 Year
  Sex: Female

DRUGS (4)
  1. SILDENAFIL [Concomitant]
  2. BERAPROST [Concomitant]
  3. TRACLEER [Suspect]
     Indication: SKIN ULCER
     Route: 048
  4. TRACLEER [Suspect]
     Route: 048

REACTIONS (5)
  - PAIN IN EXTREMITY [None]
  - DRUG LEVEL DECREASED [None]
  - DRUG INTERACTION [None]
  - SKIN ULCER [None]
  - NO THERAPEUTIC RESPONSE [None]
